FAERS Safety Report 25997003 (Version 1)
Quarter: 2025Q4

REPORT INFORMATION
  Report Type: Report from Study
  Country: US (occurrence: US)
  Receive Date: 20251104
  Receipt Date: 20251104
  Transmission Date: 20260118
  Serious: Yes (Hospitalization, Other)
  Sender: GILEAD
  Company Number: US-GILEAD-2025-0734433

PATIENT
  Age: 49 Year
  Sex: Female

DRUGS (1)
  1. BICTEGRAVIR\EMTRICITABINE\TENOFOVIR ALAFENAMIDE [Suspect]
     Active Substance: BICTEGRAVIR\EMTRICITABINE\TENOFOVIR ALAFENAMIDE
     Indication: Product used for unknown indication
     Dosage: 1PILL A DAY BY MOUTH
     Route: 048

REACTIONS (5)
  - Cerebral fungal infection [Unknown]
  - Product dose omission issue [Not Recovered/Not Resolved]
  - Coma [Unknown]
  - Near death experience [Unknown]
  - Malaise [Unknown]

NARRATIVE: CASE EVENT DATE: 20251025
